FAERS Safety Report 5625025-X (Version None)
Quarter: 2008Q1

REPORT INFORMATION
  Report Type: 
  Country: None (occurrence: None)
  Receive Date: 20080213
  Receipt Date: 20080205
  Transmission Date: 20080703
  Serious: Yes (Hospitalization)
  Sender: FDA-Public Use
  Company Number: JP-ASTRAZENECA-2008AP00882

PATIENT
  Age: 2 Year
  Sex: Female

DRUGS (1)
  1. PULMICORT RESPULES [Suspect]
     Indication: ASTHMA
     Dosage: DOSE UNKNOWN
     Route: 055

REACTIONS (1)
  - PNEUMONIA RESPIRATORY SYNCYTIAL VIRAL [None]
